FAERS Safety Report 9506122 (Version 1)
Quarter: 2013Q1

REPORT INFORMATION
  Report Type: Spontaneous
  Country: US (occurrence: None)
  Receive Date: 20130301
  Receipt Date: 20130301
  Transmission Date: 20140127
  Serious: Yes (Other)
  Sender: FDA-Public Use
  Company Number: RB-37457-2012

PATIENT
  Sex: Male

DRUGS (1)
  1. BUPRENEX [Suspect]
     Indication: PRODUCT USED FOR UNKNOWN INDICATION
     Dosage: ONE TIME 1/10 CC
     Route: 061
     Dates: start: 20120213, end: 20120213

REACTIONS (1)
  - Hypoaesthesia [None]
